FAERS Safety Report 5511128-7 (Version None)
Quarter: 2007Q4

REPORT INFORMATION
  Report Type: 
  Country: None (occurrence: None)
  Receive Date: 20071109
  Receipt Date: 20071031
  Transmission Date: 20080405
  Serious: Yes (Other)
  Sender: FDA-Public Use
  Company Number: US-SANOFI-SYNTHELABO-A03200706220

PATIENT
  Age: 39 Year
  Sex: Male

DRUGS (2)
  1. KAYEXALATE [Suspect]
     Indication: HYPERKALAEMIA
     Route: 048
  2. SORBITOL [Suspect]
     Route: 048

REACTIONS (3)
  - GASTROINTESTINAL NECROSIS [None]
  - INTESTINAL ISCHAEMIA [None]
  - LARGE INTESTINE PERFORATION [None]
